FAERS Safety Report 14204356 (Version 1)
Quarter: 2017Q4

REPORT INFORMATION
  Report Type: Spontaneous
  Country: US (occurrence: US)
  Receive Date: 20171117
  Receipt Date: 20171117
  Transmission Date: 20180321
  Serious: Yes (Disabling, Other)
  Sender: FDA-Public Use
  Company Number: None

PATIENT
  Age: 65 Year
  Sex: Male
  Weight: 90 kg

DRUGS (9)
  1. VITAMIN A [Concomitant]
     Active Substance: VITAMIN A
  2. VITAMIN B [Concomitant]
     Active Substance: VITAMIN B
  3. ESCITALOPRAM [Concomitant]
     Active Substance: ESCITALOPRAM OXALATE
  4. VITAMIN D [Concomitant]
     Active Substance: CHOLECALCIFEROL
  5. DORZOLAMIDE HCL [Concomitant]
     Active Substance: DORZOLAMIDE HYDROCHLORIDE
  6. TIMOLOL. [Concomitant]
     Active Substance: TIMOLOL
  7. VIVITROL [Suspect]
     Active Substance: NALTREXONE
     Indication: ALCOHOLISM
     Dosage: ?          QUANTITY:2 INJECTION(S);OTHER FREQUENCY:1XMONTH;?
     Route: 030
     Dates: start: 20170919, end: 20171020
  8. CPAC [Concomitant]
  9. OLEMESARTAN MEDOXOMIL [Concomitant]

REACTIONS (6)
  - Neck pain [None]
  - Pain in extremity [None]
  - Arthralgia [None]
  - Musculoskeletal pain [None]
  - Musculoskeletal stiffness [None]
  - Back pain [None]

NARRATIVE: CASE EVENT DATE: 20170921
